FAERS Safety Report 7520410-3 (Version None)
Quarter: 2011Q2

REPORT INFORMATION
  Report Type: 
  Country: None (occurrence: None)
  Receive Date: 20110602
  Receipt Date: 20110525
  Transmission Date: 20111010
  Serious: Yes (Hospitalization, Other)
  Sender: FDA-Public Use
  Company Number: US-GILEAD-2011-0039843

PATIENT
  Age: 37 Year
  Sex: Male

DRUGS (3)
  1. TENOFOVIR DISOPROXIL FUMARATE [Suspect]
     Indication: HIV INFECTION
  2. EFAVIRENZ [Suspect]
     Indication: HIV INFECTION
  3. EMTRICITABINE [Suspect]
     Indication: HIV INFECTION

REACTIONS (2)
  - VIITH NERVE PARALYSIS [None]
  - IMMUNE RECONSTITUTION SYNDROME [None]
